FAERS Safety Report 19646775 (Version 1)
Quarter: 2021Q3

REPORT INFORMATION
  Report Type: Spontaneous
  Country: GB (occurrence: GB)
  Receive Date: 20210802
  Receipt Date: 20210802
  Transmission Date: 20211014
  Serious: Yes (Life-Threatening, Hospitalization, Other)
  Sender: FDA-Public Use
  Company Number: GB-PFIZER INC-202100941360

PATIENT
  Age: 49 Year
  Sex: Male

DRUGS (7)
  1. VALPROIC ACID. [Suspect]
     Active Substance: VALPROIC ACID
     Indication: SEIZURE
     Dosage: UNK
  2. MEROPENEM. [Concomitant]
     Active Substance: MEROPENEM
     Indication: PNEUMONIA
     Dosage: UNK
  3. PHENYTOIN. [Suspect]
     Active Substance: PHENYTOIN
     Indication: SEIZURE
     Dosage: UNK
  4. LEVETIRACETAM. [Suspect]
     Active Substance: LEVETIRACETAM
     Indication: SEIZURE
     Dosage: UNK
  5. CLOBAZAM. [Suspect]
     Active Substance: CLOBAZAM
     Indication: SEIZURE
     Dosage: UNK
  6. PREDNISOLONE. [Concomitant]
     Active Substance: PREDNISOLONE
     Dosage: 60 MG, DAILY
  7. MIDAZOLAM. [Suspect]
     Active Substance: MIDAZOLAM
     Indication: SEIZURE
     Dosage: UNK

REACTIONS (10)
  - Generalised oedema [Recovering/Resolving]
  - Haemophagocytic lymphohistiocytosis [Recovering/Resolving]
  - Blood creatinine increased [Recovering/Resolving]
  - Depressed level of consciousness [Recovering/Resolving]
  - Pyrexia [Recovering/Resolving]
  - Multiple organ dysfunction syndrome [Recovering/Resolving]
  - Alanine aminotransferase increased [Recovering/Resolving]
  - Dermatitis exfoliative generalised [Recovering/Resolving]
  - Drug reaction with eosinophilia and systemic symptoms [Recovering/Resolving]
  - Rash morbilliform [Recovering/Resolving]

NARRATIVE: CASE EVENT DATE: 2021
